FAERS Safety Report 5925475-8 (Version None)
Quarter: 2008Q4

REPORT INFORMATION
  Report Type: 
  Country: None (occurrence: None)
  Receive Date: 20081016
  Receipt Date: 20080930
  Transmission Date: 20090506
  Serious: Yes (Hospitalization)
  Sender: FDA-Public Use
  Company Number: 2008002627

PATIENT
  Sex: Male

DRUGS (2)
  1. MACUGEN [Suspect]
     Dosage: (0.3 MG), INTRA-VITREAL
     Dates: start: 20080617
  2. FLOXAL [Concomitant]

REACTIONS (1)
  - VITRITIS [None]
